FAERS Safety Report 8812273 (Version 2)
Quarter: 2013Q3

REPORT INFORMATION
  Report Type: Spontaneous
  Country: DK (occurrence: None)
  Receive Date: 20120925
  Receipt Date: 20130816
  Transmission Date: 20140515
  Serious: Yes (Hospitalization, Other)
  Sender: FDA-Public Use
  Company Number: 2012P1058038

PATIENT
  Age: 73 Year
  Sex: Male

DRUGS (1)
  1. ZINACEF [Suspect]
     Indication: CHRONIC OBSTRUCTIVE PULMONARY DISEASE
     Dates: start: 20120312

REACTIONS (5)
  - Cardiac arrest [None]
  - Rib fracture [None]
  - Muscle spasms [None]
  - Anaphylactic shock [None]
  - Vomiting [None]
